FAERS Safety Report 9503237 (Version 3)
Quarter: 2013Q4

REPORT INFORMATION
  Report Type: Report from Study
  Country: PT (occurrence: PT)
  Receive Date: 20130906
  Receipt Date: 20131205
  Transmission Date: 20140711
  Serious: Yes (Life-Threatening)
  Sender: FDA-Public Use
  Company Number: PT-CELGENEUS-130-21880-13083774

PATIENT
  Age: 66 Year
  Sex: Male
  Weight: 84 kg

DRUGS (23)
  1. REVLIMID [Suspect]
     Indication: PLASMA CELL MYELOMA
     Dosage: 25 MILLIGRAM
     Route: 048
     Dates: start: 20110420, end: 20110510
  2. REVLIMID [Suspect]
     Dosage: 15 MILLIGRAM
     Route: 048
     Dates: start: 20110713, end: 20110802
  3. REVLIMID [Suspect]
     Dosage: 10 MILLIGRAM
     Route: 048
     Dates: start: 20120620, end: 20120710
  4. REVLIMID [Suspect]
     Dosage: 25 MILLIGRAM
     Route: 048
     Dates: start: 20121116, end: 20121206
  5. REVLIMID [Suspect]
     Dosage: 15 MILLIGRAM
     Route: 048
     Dates: start: 20130314, end: 20130403
  6. REVLIMID [Suspect]
     Dosage: 25 MILLIGRAM
     Route: 048
     Dates: start: 20130606, end: 20130801
  7. PREDNISOLONE [Suspect]
     Indication: PLASMA CELL MYELOMA
     Dosage: 80 MILLIGRAM
     Route: 048
     Dates: start: 20110418
  8. PREDNISOLONE [Suspect]
     Dosage: 40 MILLIGRAM
     Route: 048
     Dates: start: 20130818
  9. DEXAMETHASONE [Suspect]
     Indication: PRODUCT USED FOR UNKNOWN INDICATION
     Route: 048
     Dates: start: 20110420, end: 20110517
  10. DEXAMETHASONE [Suspect]
     Route: 048
     Dates: start: 20110713, end: 20110809
  11. DEXAMETHASONE [Suspect]
     Route: 048
     Dates: start: 20110810, end: 20110906
  12. DEXAMETHASONE [Suspect]
     Route: 048
     Dates: start: 20111228, end: 20120124
  13. DEXAMETHASONE [Suspect]
     Route: 048
     Dates: start: 20120425, end: 20120522
  14. DEXAMETHASONE [Suspect]
     Route: 048
     Dates: start: 20120719, end: 20120821
  15. DEXAMETHASONE [Suspect]
     Route: 048
     Dates: start: 20121018, end: 20121115
  16. DEXAMETHASONE [Suspect]
     Route: 048
     Dates: start: 20121116, end: 20121213
  17. DEXAMETHASONE [Suspect]
     Route: 048
     Dates: start: 20130111, end: 20130208
  18. DEXAMETHASONE [Suspect]
     Route: 048
     Dates: start: 20130209, end: 20130313
  19. DEXAMETHASONE [Suspect]
     Route: 048
     Dates: start: 20130314, end: 20130410
  20. OMEPRAZOLE [Concomitant]
     Indication: PROPHYLAXIS
     Dosage: 20 MILLIGRAM
     Route: 048
     Dates: start: 20110426
  21. CYCLOPHOSPHAMIDE [Concomitant]
     Indication: PRODUCT USED FOR UNKNOWN INDICATION
     Route: 048
     Dates: start: 20110713, end: 20110809
  22. CYCLOPHOSPHAMIDE [Concomitant]
     Route: 048
     Dates: start: 20130209, end: 20130313
  23. CYCLOPHOSPHAMIDE [Concomitant]
     Dosage: 300 MILLIGRAM
     Route: 048
     Dates: start: 20130314, end: 20130410

REACTIONS (2)
  - Necrotising fasciitis [Recovered/Resolved]
  - Septic shock [Not Recovered/Not Resolved]
